FAERS Safety Report 8063874-1 (Version None)
Quarter: 2012Q1

REPORT INFORMATION
  Report Type: 
  Country: None (occurrence: None)
  Receive Date: 20120123
  Receipt Date: 20120112
  Transmission Date: 20120608
  Serious: Yes (Hospitalization)
  Sender: FDA-Public Use
  Company Number: US-BAYER-2011-087360

PATIENT
  Age: 40 Year
  Sex: Female
  Weight: 83.9 kg

DRUGS (9)
  1. CYMBALTA [Concomitant]
     Dosage: 60 MG, UNK
  2. YAZ [Suspect]
     Indication: ORAL CONTRACEPTION
     Dosage: UNK
     Route: 048
     Dates: start: 20080101, end: 20090101
  3. DOCUSATE SODIUM [Concomitant]
     Dosage: 100 MG, BID
  4. FLECTOR [Concomitant]
  5. SOLARAZE [Concomitant]
     Dosage: 3 %, UNK
  6. UREA [Concomitant]
  7. YASMIN [Suspect]
     Indication: ORAL CONTRACEPTION
     Dosage: UNK UNK, QD
     Route: 048
     Dates: start: 20080101, end: 20090101
  8. TRIAMTERENE AND HYDROCHLOROTHIAZIDE [Concomitant]
     Dosage: 25 MG, QD
  9. TORADOL [Concomitant]

REACTIONS (3)
  - PAIN [None]
  - DEEP VEIN THROMBOSIS [None]
  - PAIN IN EXTREMITY [None]
